FAERS Safety Report 5322021-7 (Version None)
Quarter: 2007Q2

REPORT INFORMATION
  Report Type: 
  Country: None (occurrence: None)
  Receive Date: 20070511
  Receipt Date: 20070509
  Transmission Date: 20071010
  Serious: Yes (Other)
  Sender: FDA-Public Use
  Company Number: GB-SP-2007-01623

PATIENT
  Sex: Male

DRUGS (3)
  1. IMMUCYST [Suspect]
     Indication: BLADDER CANCER
     Route: 043
     Dates: start: 20070319
  2. PARACETAMOL [Concomitant]
     Indication: PERINEAL PAIN
  3. CODEINE SUL TAB [Concomitant]
     Indication: PERINEAL PAIN

REACTIONS (1)
  - MICTURITION URGENCY [None]
